FAERS Safety Report 5230169-0 (Version None)
Quarter: 2007Q1

REPORT INFORMATION
  Report Type: 
  Country: None (occurrence: None)
  Receive Date: 20070206
  Receipt Date: 20070126
  Transmission Date: 20070707
  Serious: Yes (Other)
  Sender: FDA-Public Use
  Company Number: US-PFIZER INC-2007007075

PATIENT
  Sex: Female
  Weight: 70.3 kg

DRUGS (3)
  1. GEODON [Suspect]
     Indication: AGITATION
     Route: 042
  2. ALL OTHER THERAPEUTIC PRODUCTS [Concomitant]
  3. BACLOFEN [Concomitant]

REACTIONS (2)
  - MEDICATION ERROR [None]
  - UNRESPONSIVE TO STIMULI [None]
